FAERS Safety Report 16444300 (Version 1)
Quarter: 2019Q2

REPORT INFORMATION
  Report Type: Spontaneous
  Country: FR (occurrence: FR)
  Receive Date: 20190618
  Receipt Date: 20190618
  Transmission Date: 20190711
  Serious: Yes (Other)
  Sender: FDA-Public Use
  Company Number: FR-AUROBINDO-AUR-APL-2019-033464

PATIENT

DRUGS (4)
  1. HYDROXYZINE ARROW [Suspect]
     Active Substance: HYDROXYZINE HYDROCHLORIDE
     Indication: PRODUCT USED FOR UNKNOWN INDICATION
     Dosage: 25 MILLIGRAM, ONCE A DAY
     Route: 048
     Dates: start: 20190223, end: 20190306
  2. CASPOFUNGINE MYLAN [Suspect]
     Active Substance: CASPOFUNGIN ACETATE
     Indication: ARTHRITIS BACTERIAL
     Dosage: 50 MILLIGRAM, ONCE A DAY
     Route: 042
     Dates: start: 20190223, end: 20190304
  3. CIPROFLOXACIN. [Suspect]
     Active Substance: CIPROFLOXACIN
     Indication: ARTHRITIS BACTERIAL
     Dosage: 1000 MILLIGRAM, ONCE A DAY
     Route: 048
     Dates: start: 20190228, end: 20190304
  4. DALACINE [Suspect]
     Active Substance: CLINDAMYCIN
     Indication: ARTHRITIS BACTERIAL
     Dosage: 50 MILLIGRAM, ONCE A DAY
     Route: 048
     Dates: start: 20190228, end: 20190304

REACTIONS (2)
  - Agranulocytosis [Recovered/Resolved]
  - Rash [Recovered/Resolved]

NARRATIVE: CASE EVENT DATE: 20190304
